FAERS Safety Report 8600536-3 (Version None)
Quarter: 2012Q3

REPORT INFORMATION
  Report Type: 
  Country: None (occurrence: None)
  Receive Date: 20120808
  Receipt Date: 20120808
  Transmission Date: 20120928
  Serious: Yes (Other)
  Sender: FDA-Public Use
  Company Number: None

PATIENT
  Age: 70 Year
  Sex: Female
  Weight: 68.0396 kg

DRUGS (2)
  1. INVEGA [Suspect]
     Indication: BIPOLAR DISORDER
     Dosage: 3X
     Dates: start: 20120702
  2. INVEGA SUSTENNA [Suspect]
     Indication: SCHIZOAFFECTIVE DISORDER
     Dosage: 234 MG 2
     Dates: start: 20120705, end: 20120712

REACTIONS (21)
  - DYSGRAPHIA [None]
  - DYSURIA [None]
  - BALANCE DISORDER [None]
  - DISTURBANCE IN ATTENTION [None]
  - RESTLESS LEGS SYNDROME [None]
  - MUSCLE TWITCHING [None]
  - HYPERSOMNIA [None]
  - ACTIVITIES OF DAILY LIVING IMPAIRED [None]
  - GAIT DISTURBANCE [None]
  - FEELING ABNORMAL [None]
  - READING DISORDER [None]
  - DYSPHAGIA [None]
  - DYSARTHRIA [None]
  - ASTHENIA [None]
  - LIP SWELLING [None]
  - THINKING ABNORMAL [None]
  - PARTNER STRESS [None]
  - FATIGUE [None]
  - MOVEMENT DISORDER [None]
  - THIRST [None]
  - CONFUSIONAL STATE [None]
